FAERS Safety Report 7436770-8 (Version None)
Quarter: 2011Q2

REPORT INFORMATION
  Report Type: 
  Country: None (occurrence: None)
  Receive Date: 20110426
  Receipt Date: 20110412
  Transmission Date: 20111010
  Serious: Yes (Hospitalization)
  Sender: FDA-Public Use
  Company Number: US-JNJFOC-20110407038

PATIENT
  Sex: Male
  Weight: 44.1 kg

DRUGS (12)
  1. FOLIC ACID [Concomitant]
  2. MULTI-VITAMINS [Concomitant]
  3. ASPIRIN [Concomitant]
  4. NORVASC [Concomitant]
  5. TENORMIN [Concomitant]
  6. REMICADE [Suspect]
     Indication: CROHN'S DISEASE
     Route: 042
  7. PREVACID [Concomitant]
  8. ACETAMINOPHEN [Concomitant]
  9. METHOTREXATE [Concomitant]
  10. LEVSIN [Concomitant]
  11. FERROUS SULFATE TAB [Concomitant]
  12. ANTIBIOTICS FOR IBD [Concomitant]

REACTIONS (1)
  - COLITIS [None]
